FAERS Safety Report 10211515 (Version 1)
Quarter: 2014Q2

REPORT INFORMATION
  Report Type: Spontaneous
  Country: SE (occurrence: SE)
  Receive Date: 20140602
  Receipt Date: 20140602
  Transmission Date: 20141212
  Serious: Yes (Life-Threatening, Hospitalization, Other)
  Sender: FDA-Public Use
  Company Number: SE-WATSON-2014-11779

PATIENT
  Age: 30 Year
  Sex: Female

DRUGS (1)
  1. POTASSIUM CHLORIDE EXTENDED-RELEASE CAPSULES (WATSON LABORATORIES) [Suspect]
     Indication: INTENTIONAL OVERDOSE
     Dosage: 225 G, SINGLE; APPROXIMATELY 300 SLOW-RELEASE PILLS, EACH TABLET CONTAINING 750 MG KCL
     Route: 048

REACTIONS (18)
  - Hyperkalaemia [Recovered/Resolved]
  - Bezoar [Recovered/Resolved]
  - Tachycardia [Recovered/Resolved]
  - Blood gases abnormal [Recovered/Resolved]
  - Blood lactic acid abnormal [Recovered/Resolved]
  - Blood glucose abnormal [Recovered/Resolved]
  - Oedema mucosal [Recovered/Resolved]
  - Pulmonary embolism [Recovered/Resolved]
  - Duodenal stenosis [Recovered/Resolved]
  - Impaired gastric emptying [Recovered/Resolved]
  - Somnolence [Recovered/Resolved]
  - Feeling abnormal [Recovered/Resolved]
  - Intentional overdose [Recovered/Resolved]
  - Suicide attempt [Recovered/Resolved]
  - Haemodialysis [None]
  - Toxicity to various agents [None]
  - Blood pressure decreased [None]
  - Gastrointestinal tract mucosal discolouration [None]
